FAERS Safety Report 4548017-0 (Version None)
Quarter: 2004Q4

REPORT INFORMATION
  Report Type: 
  Country: None (occurrence: None)
  Receive Date: 20041220
  Receipt Date: 20040629
  Transmission Date: 20050328
  Serious: Yes (Hospitalization, Other)
  Sender: FDA-Public Use
  Company Number: USA040671420

PATIENT
  Age: 59 Year
  Sex: Female
  Weight: 100 kg

DRUGS (6)
  1. HUMALOG [Suspect]
     Indication: DIABETES MELLITUS
     Dates: start: 20030101, end: 20040201
  2. HUMULIN 70/30 [Suspect]
     Indication: DIABETES MELLITUS
     Dosage: 90 U DAY
     Dates: start: 20040201
  3. AMARYL [Concomitant]
  4. GLUCOPHAGE [Concomitant]
  5. ALTACE [Concomitant]
  6. NORVASC [Concomitant]

REACTIONS (9)
  - ARTERIAL OCCLUSIVE DISEASE [None]
  - ASTHENIA [None]
  - BALANCE DISORDER [None]
  - BLOOD GLUCOSE INCREASED [None]
  - FEELING ABNORMAL [None]
  - HYPOAESTHESIA [None]
  - INJECTION SITE PAIN [None]
  - LOCAL SWELLING [None]
  - WEIGHT FLUCTUATION [None]
